FAERS Safety Report 4687322-4 (Version None)
Quarter: 2005Q2

REPORT INFORMATION
  Report Type: 
  Country: None (occurrence: None)
  Receive Date: 20050607
  Receipt Date: 20050527
  Transmission Date: 20051028
  Serious: Yes (Other)
  Sender: FDA-Public Use
  Company Number: 2005080834

PATIENT
  Age: 16 Year
  Sex: Male
  Weight: 72.5755 kg

DRUGS (1)
  1. DRAMAMINE DROWSY FORMULA (DIMENHYDRINATE) [Suspect]
     Dosage: 18 TABLETS ORAL
     Route: 048
     Dates: start: 20050527, end: 20050527

REACTIONS (2)
  - HALLUCINATION, VISUAL [None]
  - OVERDOSE [None]
